FAERS Safety Report 5429330-1 (Version None)
Quarter: 2007Q3

REPORT INFORMATION
  Report Type: 
  Country: None (occurrence: None)
  Receive Date: 20070827
  Receipt Date: 20070827
  Transmission Date: 20080115
  Serious: Yes (Other)
  Sender: FDA-Public Use
  Company Number: None

PATIENT
  Age: 50 Year
  Sex: Female
  Weight: 83.9154 kg

DRUGS (1)
  1. CHANTIX [Suspect]
     Indication: SMOKING CESSATION THERAPY
     Dosage: STARTING WEEK 0.5MG DAY 1, 2, 3 ONCE DAILY PO
     Route: 048
     Dates: start: 20070822, end: 20070822

REACTIONS (5)
  - CONDITION AGGRAVATED [None]
  - CRYING [None]
  - HEADACHE [None]
  - PAIN [None]
  - VISION BLURRED [None]
